FAERS Safety Report 4860789-4 (Version None)
Quarter: 2005Q4

REPORT INFORMATION
  Report Type: 
  Country: None (occurrence: None)
  Receive Date: 20051220
  Receipt Date: 20031105
  Transmission Date: 20060501
  Serious: Yes (Hospitalization, Other)
  Sender: FDA-Public Use
  Company Number: PHBS2003CZ12362

PATIENT
  Age: 39 Year
  Sex: Female

DRUGS (3)
  1. TERBINAFINE [Suspect]
     Indication: NAIL TINEA
     Dosage: 250 MG/D
     Route: 048
  2. FAMOTIDINE [Concomitant]
  3. MELOXICAM [Concomitant]
     Indication: ARTHRITIS

REACTIONS (15)
  - ANTINUCLEAR ANTIBODY POSITIVE [None]
  - ARTHRALGIA [None]
  - DOUBLE STRANDED DNA ANTIBODY [None]
  - FATIGUE [None]
  - HISTONE ANTIBODY POSITIVE [None]
  - MALAISE [None]
  - MYALGIA [None]
  - PHOTOSENSITIVITY REACTION [None]
  - RASH [None]
  - RASH ERYTHEMATOUS [None]
  - RASH MACULO-PAPULAR [None]
  - RHEUMATOID ARTHRITIS [None]
  - RHEUMATOID FACTOR INCREASED [None]
  - SKIN LESION [None]
  - SYSTEMIC LUPUS ERYTHEMATOSUS [None]
